FAERS Safety Report 16198011 (Version 1)
Quarter: 2019Q2

REPORT INFORMATION
  Report Type: Spontaneous
  Country: GB (occurrence: GB)
  Receive Date: 20190415
  Receipt Date: 20190415
  Transmission Date: 20190711
  Serious: Yes (Hospitalization)
  Sender: FDA-Public Use
  Company Number: GB-AMGEN-GBRSP2019055541

PATIENT
  Age: 59 Year
  Sex: Male
  Weight: 70.7 kg

DRUGS (5)
  1. AMGEVITA [Suspect]
     Active Substance: ADALIMUMAB
     Indication: ANKYLOSING SPONDYLITIS
     Dosage: 40 MILLIGRAM
     Route: 058
     Dates: start: 20190316, end: 20190316
  2. PREDNISOLONE. [Concomitant]
     Active Substance: PREDNISOLONE
  3. QVAR [Concomitant]
     Active Substance: BECLOMETHASONE DIPROPIONATE
  4. METHOTREXATE. [Concomitant]
     Active Substance: METHOTREXATE
     Indication: ANKYLOSING SPONDYLITIS
     Dosage: RESTARTED TWO WEEKS AGO DUE TO FLARE OF CONDITION.
     Dates: start: 201903
  5. FOLIC ACID. [Concomitant]
     Active Substance: FOLIC ACID

REACTIONS (4)
  - Vision blurred [Recovering/Resolving]
  - Visual acuity reduced [Recovering/Resolving]
  - Periorbital oedema [Recovering/Resolving]
  - Eye pain [Recovering/Resolving]

NARRATIVE: CASE EVENT DATE: 20190319
